FAERS Safety Report 5615585-7 (Version None)
Quarter: 2008Q1

REPORT INFORMATION
  Report Type: 
  Country: None (occurrence: None)
  Receive Date: 20080205
  Receipt Date: 20080205
  Transmission Date: 20080703
  Serious: Yes (Life-Threatening)
  Sender: FDA-Public Use
  Company Number: None

PATIENT
  Age: 65 Year
  Sex: Male
  Weight: 80.4 kg

DRUGS (12)
  1. SUTENT [Suspect]
     Indication: METASTATIC RENAL CELL CARCINOMA
     Dosage: 50MG DAILY PO
     Route: 048
     Dates: start: 20071201, end: 20080128
  2. WARFARIN SODIUM [Concomitant]
  3. AMBIEN [Concomitant]
  4. EPOGEN [Concomitant]
  5. VICODIN [Concomitant]
  6. BENZONATATE [Concomitant]
  7. POTASSIUM CHLORIDE [Concomitant]
  8. OMEPRAZOLE [Concomitant]
  9. ALLOPURINOL [Concomitant]
  10. MULTIVITAMIN QD [Concomitant]
  11. FERROUS SULFATE TAB [Concomitant]
  12. DIOVAN HCT [Concomitant]

REACTIONS (1)
  - HYPERTENSIVE CRISIS [None]
